FAERS Safety Report 16335759 (Version 1)
Quarter: 2019Q2

REPORT INFORMATION
  Report Type: Report from Study
  Country: AR (occurrence: AR)
  Receive Date: 20190521
  Receipt Date: 20190521
  Transmission Date: 20190711
  Serious: Yes (Other)
  Sender: FDA-Public Use
  Company Number: AR-ROCHE-2302158

PATIENT
  Sex: Male
  Weight: 90 kg

DRUGS (3)
  1. DILATREND [Suspect]
     Active Substance: CARVEDILOL
     Indication: PRODUCT USED FOR UNKNOWN INDICATION
     Route: 065
  2. MABTHERA [Suspect]
     Active Substance: RITUXIMAB
     Indication: PRODUCT USED FOR UNKNOWN INDICATION
     Route: 065
  3. POLIRREUMIN [Concomitant]

REACTIONS (6)
  - Systemic lupus erythematosus [Unknown]
  - Hypersensitivity [Unknown]
  - Asphyxia [Unknown]
  - Erythema [Unknown]
  - Myocardial infarction [Unknown]
  - Nephrotic syndrome [Unknown]
